FAERS Safety Report 4866606-0 (Version None)
Quarter: 2005Q4

REPORT INFORMATION
  Report Type: 
  Country: None (occurrence: None)
  Receive Date: 20051227
  Receipt Date: 20051216
  Transmission Date: 20060501
  Serious: Yes (Other)
  Sender: FDA-Public Use
  Company Number: US-JNJFOC-20050805287

PATIENT
  Sex: Female
  Weight: 53.98 kg

DRUGS (17)
  1. REMICADE [Suspect]
     Route: 042
  2. REMICADE [Suspect]
     Indication: RHEUMATOID ARTHRITIS
     Route: 042
  3. CALCIUM SUPPLEMENT [Concomitant]
     Indication: OSTEOPOROSIS
  4. METHOTREXATE [Concomitant]
  5. PLAQUENIL [Concomitant]
  6. FOLIC ACID [Concomitant]
  7. MOBIC [Concomitant]
  8. ACTIVELLA [Concomitant]
  9. ACTIVELLA [Concomitant]
  10. PROZAC [Concomitant]
  11. EVOXAC [Concomitant]
     Route: 065
  12. CELLUVISC OPHTHALMIC DROPS [Concomitant]
     Route: 047
  13. CELLUVISC OPHTHALMIC DROPS [Concomitant]
     Route: 047
  14. CELLUVISC OPHTHALMIC DROPS [Concomitant]
     Route: 047
  15. CELLUVISC OPHTHALMIC DROPS [Concomitant]
     Route: 047
  16. CELLUVISC OPHTHALMIC DROPS [Concomitant]
     Route: 047
  17. VITAMIN E [Concomitant]
     Route: 065

REACTIONS (7)
  - DRY MOUTH [None]
  - GINGIVAL BLEEDING [None]
  - PHARYNGOLARYNGEAL PAIN [None]
  - PYREXIA [None]
  - SINUS OPERATION [None]
  - TONGUE NEOPLASM MALIGNANT STAGE UNSPECIFIED [None]
  - TONGUE ULCERATION [None]
